FAERS Safety Report 14852815 (Version 1)
Quarter: 2018Q2

REPORT INFORMATION
  Report Type: Spontaneous
  Country: US (occurrence: US)
  Receive Date: 20180419
  Receipt Date: 20180419
  Transmission Date: 20180711
  Serious: Yes (Hospitalization)
  Sender: FDA-Public Use
  Company Number: None

PATIENT
  Age: 67 Year
  Sex: Male

DRUGS (8)
  1. AMOX/K CLAV [Concomitant]
     Active Substance: AMOXICILLIN\CLAVULANATE POTASSIUM
  2. OSELTAMIVIR [Concomitant]
     Active Substance: OSELTAMIVIR
  3. METROIDAZOLE [Concomitant]
  4. CAPECITABINE 500 MG [Suspect]
     Active Substance: CAPECITABINE
     Indication: COLON CANCER
     Dosage: 1500 MG BID X2WKS, 1WK OFF; PO?
     Route: 048
     Dates: start: 20180310
  5. CIPRO [Concomitant]
     Active Substance: CIPROFLOXACIN HYDROCHLORIDE
  6. POLYETH GLYC [Concomitant]
     Active Substance: POLYETHYLENE GLYCOLS
  7. NEOMYCIN. [Concomitant]
     Active Substance: NEOMYCIN
  8. OXYCO/APAP [Concomitant]

REACTIONS (1)
  - Drug dose omission [None]

NARRATIVE: CASE EVENT DATE: 2018
